FAERS Safety Report 9357176 (Version 3)
Quarter: 2013Q3

REPORT INFORMATION
  Report Type: Spontaneous
  Country: US (occurrence: None)
  Receive Date: 20130617
  Receipt Date: 20130905
  Transmission Date: 20140515
  Serious: Yes (Disabling, Other)
  Sender: FDA-Public Use
  Company Number: ACO_36618_2013

PATIENT
  Sex: Female
  Weight: 59 kg

DRUGS (5)
  1. AMPYRA [Suspect]
     Indication: GAIT DISTURBANCE
     Route: 048
     Dates: start: 2011, end: 2011
  2. AMPYRA [Suspect]
     Indication: MULTIPLE SCLEROSIS
     Route: 048
     Dates: start: 2011, end: 2011
  3. TIZANIDINE (TIZANIDINE) [Concomitant]
  4. OXYBUTYNIN (OXYBUTYNIN) [Concomitant]
  5. DESMOPRESSIN (DESMOPRESSIN) [Concomitant]

REACTIONS (7)
  - Abasia [None]
  - Gait disturbance [None]
  - Local swelling [None]
  - Arthralgia [None]
  - Asthenia [None]
  - Muscular weakness [None]
  - Muscular weakness [None]
